FAERS Safety Report 8052540-4 (Version None)
Quarter: 2012Q1

REPORT INFORMATION
  Report Type: 
  Country: None (occurrence: None)
  Receive Date: 20120117
  Receipt Date: 20120117
  Transmission Date: 20120608
  Serious: Yes (Hospitalization)
  Sender: FDA-Public Use
  Company Number: None

PATIENT
  Age: 49 Year
  Sex: Male
  Weight: 100.9 kg

DRUGS (1)
  1. ACETAMINOPHEN AND HYDROCODONE BITARTRATE [Suspect]
     Dosage: 1 TO 2 TAB PRN PO
     Route: 048
     Dates: start: 20110607, end: 20111011

REACTIONS (1)
  - ANGIOEDEMA [None]
